FAERS Safety Report 24461833 (Version 1)
Quarter: 2024Q4

REPORT INFORMATION
  Report Type: Report from Study
  Country: US (occurrence: US)
  Receive Date: 20241018
  Receipt Date: 20241018
  Transmission Date: 20250115
  Serious: No
  Sender: ROCHE
  Company Number: US-ROCHE-3557446

PATIENT
  Age: 25 Year
  Sex: Male

DRUGS (5)
  1. RITUXAN [Suspect]
     Active Substance: RITUXIMAB
     Indication: Nephrotic syndrome
     Dosage: INFUSE 1GM INTRAVENOUSLY ON DAY(S) 1 AND DAY(S) 15 THEN INFUSE 1GM INTRAVENOUSLY EVERY 6 MONTH. 10MG
     Route: 041
     Dates: start: 20240425, end: 20240425
  2. RITUXAN [Suspect]
     Active Substance: RITUXIMAB
     Indication: Glomerulonephritis membranous
  3. RITUXAN [Suspect]
     Active Substance: RITUXIMAB
     Indication: Nephrotic syndrome
  4. RITUXAN [Suspect]
     Active Substance: RITUXIMAB
     Indication: Hypoalbuminaemia
  5. RITUXAN [Suspect]
     Active Substance: RITUXIMAB
     Indication: Glomerulonephritis membranous

REACTIONS (7)
  - Off label use [Unknown]
  - Hyperhidrosis [Unknown]
  - Throat irritation [Recovered/Resolved]
  - Feeling hot [Unknown]
  - Oropharyngeal discomfort [Unknown]
  - Drug hypersensitivity [Unknown]
  - Throat tightness [Recovered/Resolved]

NARRATIVE: CASE EVENT DATE: 20240425
